FAERS Safety Report 7427577-6 (Version None)
Quarter: 2011Q2

REPORT INFORMATION
  Report Type: 
  Country: None (occurrence: None)
  Receive Date: 20110420
  Receipt Date: 20110406
  Transmission Date: 20111010
  Serious: Yes (Death)
  Sender: FDA-Public Use
  Company Number: KE-BAXTER-2011BH010369

PATIENT
  Age: 4 Year
  Sex: Male
  Weight: 13 kg

DRUGS (11)
  1. QUININE SULFATE [Concomitant]
     Indication: PRODUCT USED FOR UNKNOWN INDICATION
     Route: 065
  2. ADRENALIN IN OIL INJ [Concomitant]
     Indication: PRODUCT USED FOR UNKNOWN INDICATION
     Route: 065
     Dates: start: 20100207
  3. PARACETAMOL [Concomitant]
     Indication: PRODUCT USED FOR UNKNOWN INDICATION
     Route: 065
  4. NORMAL SALINE [Concomitant]
     Indication: PRODUCT USED FOR UNKNOWN INDICATION
     Route: 042
     Dates: start: 20100207
  5. HUMAN ALBUMIN IMMUNO 5% [Suspect]
     Indication: FLUID REPLACEMENT
     Route: 042
     Dates: start: 20100206, end: 20100201
  6. DEXTROSE 10% [Concomitant]
     Indication: BLOOD GLUCOSE DECREASED
     Route: 042
     Dates: start: 20100207
  7. DIAZEPAM [Concomitant]
     Indication: CONVULSION
     Route: 054
     Dates: start: 20100206, end: 20100206
  8. DIAZEPAM [Concomitant]
     Indication: PRODUCT USED FOR UNKNOWN INDICATION
     Route: 042
     Dates: start: 20100206, end: 20100201
  9. CEFTRIAXONE [Concomitant]
     Indication: PRODUCT USED FOR UNKNOWN INDICATION
     Route: 065
  10. PHENOBARBITONE [Concomitant]
     Indication: CONVULSION
     Route: 065
     Dates: start: 20100201
  11. BLOOD TRANSFUSION, AUXILIARY PRODUCTS [Concomitant]
     Indication: PRODUCT USED FOR UNKNOWN INDICATION
     Route: 065
     Dates: start: 20100207

REACTIONS (1)
  - DEATH [None]
